FAERS Safety Report 25577507 (Version 3)
Quarter: 2025Q3

REPORT INFORMATION
  Report Type: Spontaneous
  Country: GB (occurrence: GB)
  Receive Date: 20250718
  Receipt Date: 20250825
  Transmission Date: 20251021
  Serious: Yes (Death)
  Sender: SAMSUNG BIOEPIS
  Company Number: GB-SAMSUNG BIOEPIS-SB-2025-24570

PATIENT
  Age: 60 Year
  Sex: Male

DRUGS (1)
  1. EPYSQLI [Suspect]
     Active Substance: ECULIZUMAB-AAGH
     Indication: Haemolysis
     Dosage: 300 MG/30 ML; THERAPY END DATE: 06-JUL-2025
     Route: 042
     Dates: start: 20250706

REACTIONS (2)
  - Multiple organ dysfunction syndrome [Fatal]
  - Off label use [Unknown]
